FAERS Safety Report 23098454 (Version 1)
Quarter: 2023Q4

REPORT INFORMATION
  Report Type: Spontaneous
  Country: CN (occurrence: CN)
  Receive Date: 20231023
  Receipt Date: 20231023
  Transmission Date: 20240109
  Serious: Yes (Life-Threatening, Hospitalization)
  Sender: FDA-Public Use
  Company Number: CN-PFIZER INC-PV202300173618

PATIENT
  Age: 67 Year
  Sex: Female
  Weight: 43 kg

DRUGS (4)
  1. PACLITAXEL [Suspect]
     Active Substance: PACLITAXEL
     Indication: Ovarian cancer
     Dosage: 210 MG, 1X/DAY
     Route: 041
     Dates: start: 20230913, end: 20230913
  2. CARBOPLATIN [Suspect]
     Active Substance: CARBOPLATIN
     Indication: Ovarian cancer
     Dosage: 400 MG, 1X/DAY
     Route: 041
     Dates: start: 20230913, end: 20230913
  3. SODIUM CHLORIDE [Concomitant]
     Active Substance: SODIUM CHLORIDE
     Indication: Vehicle solution use
     Dosage: 800 ML, 1X/DAY
     Route: 041
     Dates: start: 20230913, end: 20230913
  4. SODIUM CHLORIDE [Concomitant]
     Active Substance: SODIUM CHLORIDE
     Indication: Vehicle solution use
     Dosage: 250 ML, 1X/DAY
     Route: 041
     Dates: start: 20230913, end: 20230913

REACTIONS (2)
  - Platelet count decreased [Recovering/Resolving]
  - Haemoglobin increased [Unknown]

NARRATIVE: CASE EVENT DATE: 20230913
